FAERS Safety Report 19877002 (Version 6)
Quarter: 2023Q2

REPORT INFORMATION
  Report Type: Report from Study
  Country: DE (occurrence: DE)
  Receive Date: 20210923
  Receipt Date: 20230626
  Transmission Date: 20230722
  Serious: Yes (Death, Other)
  Sender: FDA-Public Use
  Company Number: DE-TAKEDA-2021TUS058829

PATIENT
  Age: 74 Year
  Sex: Male

DRUGS (2)
  1. ICATIBANT [Suspect]
     Active Substance: ICATIBANT ACETATE
     Indication: Hereditary angioedema
     Dosage: UNK
     Route: 065
  2. ICATIBANT [Suspect]
     Active Substance: ICATIBANT ACETATE
     Indication: Hereditary angioedema
     Dosage: UNK
     Route: 065

REACTIONS (1)
  - Cardiac death [Fatal]

NARRATIVE: CASE EVENT DATE: 20210717
